FAERS Safety Report 12994818 (Version 3)
Quarter: 2017Q3

REPORT INFORMATION
  Report Type: Spontaneous
  Country: FR (occurrence: FR)
  Receive Date: 20161202
  Receipt Date: 20170829
  Transmission Date: 20171127
  Serious: Yes (Life-Threatening, Other)
  Sender: FDA-Public Use
  Company Number: FR-EMCURE PHARMS-2016HTG00290

PATIENT
  Age: 36 Year
  Sex: Male

DRUGS (19)
  1. PARACETAMOL [Concomitant]
     Active Substance: ACETAMINOPHEN
     Dosage: 1 G, UNK
     Route: 042
     Dates: start: 20161103, end: 20161103
  2. ETOPOSIDE MYLAN [Suspect]
     Active Substance: ETOPOSIDE
     Indication: TRANSPLANT
     Dosage: 200 MG, EVERY 48 HOURS
     Route: 042
  3. POLARAMINE [Concomitant]
     Active Substance: DEXCHLORPHENIRAMINE MALEATE
     Dosage: UNK
     Dates: start: 20161103, end: 20161103
  4. PRIMPERAN [Concomitant]
     Active Substance: METOCLOPRAMIDE HYDROCHLORIDE
     Dosage: 10 MG, UNK
     Dates: start: 20161106, end: 20161107
  5. LARGACTIL [Concomitant]
     Active Substance: CHLORPROMAZINE
     Dosage: 12.5 MG, UNK
     Dates: start: 20161109, end: 20161109
  6. SMECTA [Concomitant]
     Active Substance: MONTMORILLONITE
     Dosage: UNK
     Dates: start: 20161107, end: 20161108
  7. PARACETAMOL [Concomitant]
     Active Substance: ACETAMINOPHEN
     Dosage: 1 G, UNK
     Route: 042
     Dates: start: 20161108, end: 20161108
  8. AXEPIM [Concomitant]
     Active Substance: CEFEPIME HYDROCHLORIDE
     Dosage: UNK
     Dates: start: 20161108, end: 20161109
  9. ETOPOPHOS [Suspect]
     Active Substance: ETOPOSIDE PHOSPHATE
     Indication: TRANSPLANT
     Dosage: 200 MG, 2X/DAY
     Route: 042
     Dates: start: 20161105, end: 20161106
  10. SOLU-MEDROL [Concomitant]
     Active Substance: METHYLPREDNISOLONE SODIUM SUCCINATE
     Dosage: 40 MG, UNK
     Route: 042
     Dates: start: 20161104, end: 20161108
  11. PRIMPERAN [Concomitant]
     Active Substance: METOCLOPRAMIDE HYDROCHLORIDE
     Dosage: 60 MG, UNK
     Dates: start: 20161108, end: 20161108
  12. BICNU [Suspect]
     Active Substance: CARMUSTINE
     Indication: TRANSPLANT
     Dosage: 600 MG, 1X/DAY
     Route: 042
     Dates: start: 20161103, end: 20161103
  13. CYTARABINE KABI [Suspect]
     Active Substance: CYTARABINE
     Indication: TRANSPLANT
     Dosage: 400 MG, 2X/DAY
     Route: 042
     Dates: start: 20161104, end: 20161107
  14. ZOPHREN [Concomitant]
     Active Substance: ONDANSETRON
     Dosage: 8 MG, UNK
     Dates: start: 20161104, end: 20161108
  15. AMIKLIN [Concomitant]
     Active Substance: AMIKACIN SULFATE
     Dosage: UNK
     Dates: start: 20161108, end: 20161108
  16. TIORFAN [Concomitant]
     Active Substance: RACECADOTRIL
     Dosage: UNK
     Dates: start: 20161107, end: 20161108
  17. ENDOXAN [Suspect]
     Active Substance: CYCLOPHOSPHAMIDE
     Indication: TRANSPLANT
     Dosage: 3000 MG, 1X/DAY
     Route: 042
     Dates: start: 20161104, end: 20161107
  18. EG LABO [Concomitant]
     Dosage: 1200 MG, UNK
     Route: 042
     Dates: start: 20161105, end: 20161108
  19. LASILIX [Concomitant]
     Active Substance: FUROSEMIDE
     Dosage: 20 MG, UNK
     Dates: start: 20161109, end: 20161109

REACTIONS (7)
  - Lung disorder [Unknown]
  - Acute kidney injury [Recovering/Resolving]
  - Cardiotoxicity [Recovered/Resolved]
  - Acute respiratory distress syndrome [Recovered/Resolved]
  - Aplasia [Unknown]
  - Pulmonary toxicity [Recovered/Resolved]
  - Oedema peripheral [Unknown]

NARRATIVE: CASE EVENT DATE: 20161109
